FAERS Safety Report 4800196-3 (Version None)
Quarter: 2005Q4

REPORT INFORMATION
  Report Type: 
  Country: None (occurrence: None)
  Receive Date: 20051017
  Receipt Date: 20051007
  Transmission Date: 20060501
  Serious: Yes (Other)
  Sender: FDA-Public Use
  Company Number: US-GLAXOSMITHKLINE-A0577501A

PATIENT
  Sex: Male

DRUGS (1)
  1. ECOTRIN REGULAR STRENGTH TABLETS [Suspect]
     Route: 048

REACTIONS (4)
  - CONTUSION [None]
  - HAEMORRHAGE [None]
  - PRURITUS [None]
  - SCAB [None]
